FAERS Safety Report 22984493 (Version 3)
Quarter: 2023Q4

REPORT INFORMATION
  Report Type: Report from Study
  Country: CO (occurrence: CO)
  Receive Date: 20230926
  Receipt Date: 20231031
  Transmission Date: 20240110
  Serious: Yes (Other)
  Sender: FDA-Public Use
  Company Number: CO-BAYER-2023A134285

PATIENT
  Sex: Female

DRUGS (2)
  1. EYLEA [Suspect]
     Active Substance: AFLIBERCEPT
     Indication: Diabetic retinal oedema
     Dosage: 2 MG INTRAVITREAL MONTHLY FOR 5 MONTHS, THEN EVERY 2 MON, SOLUTION FOR INJECTION, 40 MG/ML
     Route: 031
     Dates: start: 20191005, end: 20191005
  2. EYLEA [Suspect]
     Active Substance: AFLIBERCEPT
     Dosage: 2 MG INTRAVITREALLY, MONTHLY FOR 5 MONTHS, THEN EVERY 2 MONTHS, SOLUTION FOR INJECTION, 40 MG/ML
     Route: 031
     Dates: start: 20230626

REACTIONS (4)
  - Blindness [Not Recovered/Not Resolved]
  - Cataract [Not Recovered/Not Resolved]
  - Eye laser surgery [Unknown]
  - Influenza [Not Recovered/Not Resolved]

NARRATIVE: CASE EVENT DATE: 20230501
